FAERS Safety Report 16410763 (Version 1)
Quarter: 2019Q2

REPORT INFORMATION
  Report Type: Spontaneous
  Country: US (occurrence: US)
  Receive Date: 20190610
  Receipt Date: 20190610
  Transmission Date: 20190711
  Serious: Yes (Life-Threatening, Hospitalization, Other)
  Sender: FDA-Public Use
  Company Number: US-OXFORD PHARMACEUTICALS, LLC-2019OXF00087

PATIENT
  Age: 54 Year
  Sex: Female

DRUGS (1)
  1. BACLOFEN. [Suspect]
     Active Substance: BACLOFEN
     Dosage: 400 MG, ONCE
     Route: 048

REACTIONS (7)
  - Bradycardia [Recovered/Resolved]
  - Hypotension [Recovered/Resolved]
  - Overdose [Recovered/Resolved]
  - Cardiac arrest [Recovered/Resolved]
  - Unresponsive to stimuli [Recovered/Resolved]
  - Respiration abnormal [Recovered/Resolved]
  - Sinus arrest [Recovered/Resolved]
